FAERS Safety Report 8534623 (Version 5)
Quarter: 2013Q2

REPORT INFORMATION
  Report Type: Spontaneous
  Country: US (occurrence: US)
  Receive Date: 20120427
  Receipt Date: 20130429
  Transmission Date: 20140414
  Serious: Yes (Hospitalization, Other)
  Sender: FDA-Public Use
  Company Number: US-009507513-1204USA03178

PATIENT
  Sex: Female

DRUGS (3)
  1. FOSAMAX [Suspect]
     Indication: OSTEOPOROSIS
     Dosage: 70 MG, QW
     Route: 048
     Dates: start: 200305, end: 201204
  2. FOSAMAX [Suspect]
     Indication: OSTEOPENIA
  3. PREVACID [Concomitant]
     Dates: start: 200103, end: 201104

REACTIONS (49)
  - Femur fracture [Recovered/Resolved]
  - Pyelonephritis [Unknown]
  - Dyslipidaemia [Unknown]
  - Urosepsis [Unknown]
  - Enterococcal infection [Unknown]
  - Staphylococcal infection [Unknown]
  - Metabolic acidosis [Unknown]
  - Bone marrow failure [Unknown]
  - Respiratory failure [Recovered/Resolved]
  - Gastric dilatation [Unknown]
  - Pneumonia aspiration [Recovered/Resolved]
  - Pain [Not Recovered/Not Resolved]
  - Febrile infection [Recovered/Resolved]
  - Bacterial disease carrier [Unknown]
  - Quadriparesis [Unknown]
  - Hypokalaemia [Unknown]
  - Gastrointestinal disorder [Unknown]
  - Constipation [Not Recovered/Not Resolved]
  - Syringomyelia [Unknown]
  - Myeloproliferative disorder [Unknown]
  - Pelvic mass [Unknown]
  - Decubitus ulcer [Unknown]
  - Dysaesthesia [Unknown]
  - Anaemia [Unknown]
  - Urinary tract infection [Recovering/Resolving]
  - Sleep attacks [Unknown]
  - Nephrolithiasis [Not Recovered/Not Resolved]
  - Breast necrosis [Unknown]
  - Diabetes mellitus [Unknown]
  - Calcium deficiency [Unknown]
  - Vitamin D deficiency [Unknown]
  - Exostosis [Unknown]
  - Sleep apnoea syndrome [Unknown]
  - Skin ulcer [Unknown]
  - Iron deficiency anaemia [Unknown]
  - Haematuria [Unknown]
  - Herpes simplex [Not Recovered/Not Resolved]
  - Lower limb fracture [Unknown]
  - Flank pain [Unknown]
  - Upper respiratory tract infection [Unknown]
  - Hyperchlorhydria [Unknown]
  - Tachycardia [Unknown]
  - Restrictive pulmonary disease [Unknown]
  - Tooth extraction [Unknown]
  - Neuropathy peripheral [Unknown]
  - Asthenia [Unknown]
  - Drug hypersensitivity [Unknown]
  - Rash [Unknown]
  - Urticaria [Unknown]
